FAERS Safety Report 9920951 (Version 1)
Quarter: 2014Q1

REPORT INFORMATION
  Report Type: Spontaneous
  Country: US (occurrence: US)
  Receive Date: 20140225
  Receipt Date: 20140225
  Transmission Date: 20141002
  Serious: No
  Sender: FDA-Public Use
  Company Number: US-BIOGENIDEC-2014BI016367

PATIENT
  Age: 49 Year
  Sex: Male

DRUGS (6)
  1. TYSABRI [Suspect]
     Indication: MULTIPLE SCLEROSIS
     Route: 042
     Dates: start: 20140124
  2. WELLBUTRIN [Concomitant]
     Indication: SMOKING CESSATION THERAPY
  3. NUCYNTA [Concomitant]
     Indication: PAIN
     Dates: start: 201312
  4. LISINOPRIL [Concomitant]
     Indication: BLOOD PRESSURE
  5. RITALIN [Concomitant]
     Indication: FATIGUE
     Dates: start: 201308
  6. PERCOCET [Concomitant]
     Indication: PAIN
     Dates: start: 201309

REACTIONS (5)
  - Feeling cold [Not Recovered/Not Resolved]
  - Pain [Not Recovered/Not Resolved]
  - Abnormal behaviour [Not Recovered/Not Resolved]
  - Crying [Not Recovered/Not Resolved]
  - Fatigue [Not Recovered/Not Resolved]
